FAERS Safety Report 13254801 (Version 8)
Quarter: 2018Q3

REPORT INFORMATION
  Report Type: Spontaneous
  Country: US (occurrence: US)
  Receive Date: 20170221
  Receipt Date: 20180905
  Transmission Date: 20181010
  Serious: Yes (Other)
  Sender: FDA-Public Use
  Company Number: US-PFIZER INC-2017067818

PATIENT
  Age: 79 Year
  Sex: Female
  Weight: 63.49 kg

DRUGS (10)
  1. LIPITOR [Suspect]
     Active Substance: ATORVASTATIN CALCIUM
     Indication: PROPHYLAXIS
     Dosage: 10 MG, DAILY
     Route: 048
     Dates: start: 20120213
  2. LIPITOR [Suspect]
     Active Substance: ATORVASTATIN CALCIUM
     Dosage: 10 MG, 1X/DAY
     Route: 048
     Dates: start: 20160622
  3. FISH OIL [Concomitant]
     Active Substance: FISH OIL
     Dosage: UNK
  4. LIPITOR [Suspect]
     Active Substance: ATORVASTATIN CALCIUM
     Dosage: 10 MG, 1X/DAY
     Route: 048
     Dates: start: 20160713, end: 20170313
  5. VITAMIN D3 [Concomitant]
     Active Substance: CHOLECALCIFEROL
     Dosage: 1000 IU, DAILY (EVERY DAY)
  6. LIPITOR [Suspect]
     Active Substance: ATORVASTATIN CALCIUM
     Indication: BLOOD CHOLESTEROL INCREASED
     Dosage: 10 MG, ONCE A DAY (BEFORE SHE GOES TO BED)
     Route: 048
     Dates: start: 2015
  7. LIQUID CALCIUM WITH MAGNESIUM [Concomitant]
     Dosage: UNK
  8. LIPITOR [Suspect]
     Active Substance: ATORVASTATIN CALCIUM
     Dosage: 10 MG, DAILY
     Route: 048
     Dates: start: 20170214
  9. LIPITOR [Suspect]
     Active Substance: ATORVASTATIN CALCIUM
     Indication: HYPERLIPIDAEMIA
     Dosage: 10 MG, 1X/DAY
     Route: 048
     Dates: start: 201605
  10. CALCIUM+D3 [Concomitant]
     Dosage: UNK (I TAKEN SEPARATELY VITAMIN D3 ALL THE TIME)

REACTIONS (14)
  - Back pain [Recovering/Resolving]
  - Limb mass [Unknown]
  - Hypoacusis [Unknown]
  - Influenza [Unknown]
  - Abdominal pain [Recovered/Resolved]
  - Arthralgia [Recovered/Resolved]
  - Arthralgia [Not Recovered/Not Resolved]
  - Muscle twitching [Unknown]
  - Myalgia [Recovered/Resolved]
  - Muscle spasms [Not Recovered/Not Resolved]
  - Paralysis [Unknown]
  - Pain in extremity [Recovered/Resolved]
  - Nausea [Recovering/Resolving]
  - Malaise [Unknown]

NARRATIVE: CASE EVENT DATE: 2016
